FAERS Safety Report 7277328-3 (Version None)
Quarter: 2011Q1

REPORT INFORMATION
  Report Type: 
  Country: None (occurrence: None)
  Receive Date: 20110203
  Receipt Date: 20110203
  Transmission Date: 20110831
  Serious: Yes (Death)
  Sender: FDA-Public Use
  Company Number: None

PATIENT
  Sex: Female

DRUGS (8)
  1. POTASSIUM CHLORIDE [Concomitant]
  2. EMEND [Concomitant]
  3. ONDANSETRON [Concomitant]
  4. DOCUSATE SODIUM [Concomitant]
  5. KETOROLAC [Concomitant]
  6. SENNA [Concomitant]
  7. REVLIMID [Suspect]
     Indication: MULTIPLE MYELOMA
     Dosage: REVLIMID 10 MG PO DAILY X 21D ORAL
     Route: 048
     Dates: start: 20091111, end: 20100119
  8. DEXAMETHASONE [Concomitant]

REACTIONS (14)
  - THROMBOCYTOPENIA [None]
  - PYREXIA [None]
  - ANAEMIA [None]
  - COUGH [None]
  - FATIGUE [None]
  - VOMITING [None]
  - PNEUMONIA INFLUENZAL [None]
  - DEHYDRATION [None]
  - ASTHENIA [None]
  - MENTAL STATUS CHANGES [None]
  - NAUSEA [None]
  - CONDITION AGGRAVATED [None]
  - RENAL FAILURE ACUTE [None]
  - ELECTROLYTE IMBALANCE [None]
